FAERS Safety Report 9992661 (Version 1)
Quarter: 2014Q1

REPORT INFORMATION
  Report Type: Spontaneous
  Country: IT (occurrence: IT)
  Receive Date: 20140310
  Receipt Date: 20140310
  Transmission Date: 20141002
  Serious: Yes (Other)
  Sender: FDA-Public Use
  Company Number: IT-ACTAVIS-2014-03763

PATIENT
  Age: 68 Year
  Sex: Female

DRUGS (3)
  1. OXALIPLATIN (UNKNOWN) [Suspect]
     Indication: COLON CANCER METASTATIC
     Dosage: UNK; 30 MINUTES AFTER THE THIRD CYCLE
     Route: 042
     Dates: start: 2011
  2. LEUCOVORIN                         /00566701/ [Concomitant]
     Indication: COLON CANCER METASTATIC
     Dosage: UNK
     Route: 042
     Dates: start: 2011
  3. FLUOROURACIL [Concomitant]
     Indication: COLON CANCER METASTATIC
     Dosage: UNK
     Route: 042
     Dates: start: 2011

REACTIONS (1)
  - Thrombotic thrombocytopenic purpura [Recovered/Resolved]
